FAERS Safety Report 24746710 (Version 1)
Quarter: 2024Q4

REPORT INFORMATION
  Report Type: Other
  Country: US (occurrence: US)
  Receive Date: 20241218
  Receipt Date: 20241218
  Transmission Date: 20250115
  Serious: Yes (Life-Threatening, Hospitalization, Other)
  Sender: DEXCEL
  Company Number: US-DEXPHARM-2024-5010

PATIENT
  Age: 54 Year
  Sex: Female
  Weight: 101 kg

DRUGS (5)
  1. ANASTROZOLE [Interacting]
     Active Substance: ANASTROZOLE
  2. ATORVASTATIN [Interacting]
     Active Substance: ATORVASTATIN
  3. CYCLOBENZAPRINE [Suspect]
     Active Substance: CYCLOBENZAPRINE
  4. OMEPRAZOLE [Interacting]
     Active Substance: OMEPRAZOLE
  5. PAROXETINE [Suspect]
     Active Substance: PAROXETINE

REACTIONS (6)
  - Hypokalaemia [Recovered/Resolved]
  - Rhabdomyolysis [Recovered/Resolved]
  - Arrhythmia [Recovered/Resolved]
  - Diarrhoea [Recovered/Resolved]
  - Decreased appetite [Recovered/Resolved]
  - Drug interaction [Recovered/Resolved]
